FAERS Safety Report 24884699 (Version 1)
Quarter: 2025Q1

REPORT INFORMATION
  Report Type: Spontaneous
  Country: US (occurrence: US)
  Receive Date: 20250124
  Receipt Date: 20250124
  Transmission Date: 20250408
  Serious: No
  Sender: SANOFI AVENTIS
  Company Number: US-SA-2025SA021743

PATIENT
  Sex: Male
  Weight: 39.546 kg

DRUGS (6)
  1. DUPIXENT [Suspect]
     Active Substance: DUPILUMAB
     Indication: Dermatitis atopic
     Dosage: 200 MG, QOW
     Route: 058
     Dates: start: 20240124
  2. SYMBICORT [Concomitant]
     Active Substance: BUDESONIDE\FORMOTEROL FUMARATE DIHYDRATE
  3. VITAMINS [Concomitant]
     Active Substance: VITAMINS
  4. LIDOCAINE [Concomitant]
     Active Substance: LIDOCAINE
  5. CLARITIN [Concomitant]
     Active Substance: LORATADINE
  6. ALBUTEROL SULFATE [Concomitant]
     Active Substance: ALBUTEROL SULFATE

REACTIONS (2)
  - Eczema [Unknown]
  - Product dose omission issue [Unknown]
